FAERS Safety Report 24323082 (Version 1)
Quarter: 2024Q3

REPORT INFORMATION
  Report Type: Spontaneous
  Country: US (occurrence: None)
  Receive Date: 20240913
  Receipt Date: 20240913
  Transmission Date: 20241016
  Serious: No
  Sender: Public
  Company Number: None

PATIENT
  Age: 71 Year
  Sex: Female
  Weight: 72.12 kg

DRUGS (2)
  1. INFLECTRA [Suspect]
     Active Substance: INFLIXIMAB-DYYB
     Indication: Psoriatic arthropathy
     Dosage: INFUSE 290MG BINTRAVENEOUSLY  EVERY 8 WEEKS   AS DIRECTED..??THERAPY STOPP: ON HOLD    ?
     Route: 042
     Dates: start: 202301
  2. OTEZLA [Suspect]
     Active Substance: APREMILAST
     Indication: Psoriatic arthropathy
     Dosage: TAKE 1 TABLET BY MOUTH  TWICE DAILY AS DIRECTED.    ??THERAPY STOPPED: L ON HOLD
     Route: 048
     Dates: start: 202407

REACTIONS (2)
  - Skin cancer [None]
  - Therapy cessation [None]
